FAERS Safety Report 19456147 (Version 1)
Quarter: 2021Q2

REPORT INFORMATION
  Report Type: Spontaneous
  Country: US (occurrence: US)
  Receive Date: 20210624
  Receipt Date: 20210624
  Transmission Date: 20210717
  Serious: Yes (Other)
  Sender: FDA-Public Use
  Company Number: None

PATIENT
  Age: 76 Year
  Sex: Female
  Weight: 53.07 kg

DRUGS (9)
  1. HYDRGXYZINE [Concomitant]
  2. TAMSULOSIN 0.4MG CAPSULES [Suspect]
     Active Substance: TAMSULOSIN
     Indication: BLADDER DISORDER
     Dosage: ?          QUANTITY:1 PILL PER DAY;?
     Route: 048
     Dates: start: 20201225, end: 20201227
  3. IRBESARTAN. [Concomitant]
     Active Substance: IRBESARTAN
  4. NO DRUG NAME [Concomitant]
  5. EYE DROP [Concomitant]
     Active Substance: UNSPECIFIED INGREDIENT
  6. ASPIRIN (LOW DOSE) [Concomitant]
  7. ROSUVASTATIN. [Concomitant]
     Active Substance: ROSUVASTATIN
  8. AMLODIPINE [Concomitant]
     Active Substance: AMLODIPINE BESYLATE
  9. MULTIVITAMIN [Concomitant]
     Active Substance: VITAMINS

REACTIONS (4)
  - Loss of consciousness [None]
  - Product use issue [None]
  - Dizziness [None]
  - Nausea [None]
